FAERS Safety Report 9155867 (Version 1)
Quarter: 2013Q1

REPORT INFORMATION
  Report Type: Spontaneous
  Country: US (occurrence: US)
  Receive Date: 20130311
  Receipt Date: 20130311
  Transmission Date: 20140127
  Serious: Yes (Hospitalization, Other)
  Sender: FDA-Public Use
  Company Number: US-009507513-1303USA001875

PATIENT
  Age: 50 Year
  Sex: Female

DRUGS (15)
  1. SINGULAIR [Suspect]
  2. POTASSIUM (UNSPECIFIED) [Concomitant]
  3. MIRAPEX [Concomitant]
  4. XYZAL [Concomitant]
  5. MS CONTIN [Concomitant]
  6. MAGNESIA [MILK OF] [Concomitant]
  7. LEXAPRO [Concomitant]
  8. [THERAPY UNSPECIFIED] [Concomitant]
  9. CARAFATE [Concomitant]
  10. ADVAIR [Concomitant]
  11. NEXIUM [Concomitant]
  12. TERIPARATIDE [Concomitant]
     Dosage: UNKNOWN
  13. TERIPARATIDE [Concomitant]
     Dosage: UNKNOWN
  14. LYRICA [Concomitant]
  15. CELEBREX [Concomitant]

REACTIONS (19)
  - Insomnia [Unknown]
  - Activities of daily living impaired [Unknown]
  - Anxiety [Unknown]
  - Arthralgia [Unknown]
  - Diarrhoea [Unknown]
  - Dizziness [Unknown]
  - Drug dose omission [Unknown]
  - Eye discharge [Unknown]
  - Abdominal pain upper [Unknown]
  - Fatigue [Unknown]
  - Vomiting [Unknown]
  - Keratitis [Unknown]
  - Malaise [Unknown]
  - Mental impairment [Unknown]
  - Nausea [Unknown]
  - Pain [Unknown]
  - Retching [Unknown]
  - Visual impairment [Unknown]
  - Eye disorder [Unknown]
